FAERS Safety Report 13439459 (Version 1)
Quarter: 2017Q2

REPORT INFORMATION
  Report Type: Report from Study
  Country: US (occurrence: US)
  Receive Date: 20170412
  Receipt Date: 20170412
  Transmission Date: 20170830
  Serious: Yes (Death, Hospitalization)
  Sender: FDA-Public Use
  Company Number: US-B.I. PHARMACEUTICALS,INC./RIDGEFIELD-2017-BI-006947

PATIENT
  Sex: Female

DRUGS (2)
  1. OFEV [Suspect]
     Active Substance: NINTEDANIB
     Indication: IDIOPATHIC PULMONARY FIBROSIS
     Route: 048
     Dates: start: 20161221
  2. AMLODIPINE [Concomitant]
     Active Substance: AMLODIPINE BESYLATE
     Indication: PRODUCT USED FOR UNKNOWN INDICATION
     Route: 065

REACTIONS (12)
  - Asthenia [Unknown]
  - Abdominal pain upper [Unknown]
  - Feeding disorder [Unknown]
  - Confusional state [Unknown]
  - Memory impairment [Unknown]
  - Presyncope [Unknown]
  - Blood potassium decreased [Unknown]
  - Dyspnoea [Unknown]
  - Productive cough [Unknown]
  - Nausea [Unknown]
  - Idiopathic pulmonary fibrosis [Fatal]
  - Decreased appetite [Unknown]
